FAERS Safety Report 7472743-7 (Version None)
Quarter: 2011Q2

REPORT INFORMATION
  Report Type: 
  Country: None (occurrence: None)
  Receive Date: 20110511
  Receipt Date: 20110429
  Transmission Date: 20111010
  Serious: Yes (Other)
  Sender: FDA-Public Use
  Company Number: IT-CELGENEUS-083-21880-11020366

PATIENT
  Sex: Female
  Weight: 93 kg

DRUGS (10)
  1. CARDIOVASC [Concomitant]
     Dosage: 20 MILLIGRAM
     Route: 048
     Dates: start: 20100301
  2. LANSOPRAZOLE [Concomitant]
     Route: 065
     Dates: start: 20100721
  3. DEXAMETHASONE SODIUM PHOSPHATE [Suspect]
     Indication: MULTIPLE MYELOMA
     Route: 048
     Dates: start: 20100721, end: 20100913
  4. REVLIMID [Suspect]
     Indication: MULTIPLE MYELOMA
     Dosage: 25 MILLIGRAM
     Route: 048
     Dates: start: 20100721, end: 20101107
  5. DEXAMETHASONE SODIUM PHOSPHATE [Suspect]
     Route: 048
     Dates: start: 20100928, end: 20101110
  6. DEXAMETHASONE SODIUM PHOSPHATE [Suspect]
     Route: 048
     Dates: start: 20100914, end: 20100927
  7. ASPIRIN [Concomitant]
     Dosage: 100 MILLIGRAM
     Route: 048
     Dates: start: 20100720
  8. TALAVIR [Concomitant]
     Dosage: 1000 MILLIGRAM
     Route: 048
     Dates: start: 20101214
  9. TALAVIR [Concomitant]
     Route: 065
     Dates: start: 20110107
  10. LIMPIDEX [Concomitant]
     Dosage: 30 MILLIGRAM
     Route: 065
     Dates: start: 20100720

REACTIONS (1)
  - BREAST CANCER IN SITU [None]
